FAERS Safety Report 4994690-2 (Version None)
Quarter: 2006Q1

REPORT INFORMATION
  Report Type: 
  Country: None (occurrence: None)
  Receive Date: 20060313
  Receipt Date: 20060105
  Transmission Date: 20060701
  Serious: No
  Sender: FDA-Public Use
  Company Number: 2005-BP-20335BP

PATIENT
  Age: 86 Year
  Sex: Female

DRUGS (6)
  1. SPIRIVA [Suspect]
     Indication: EMPHYSEMA
     Dosage: 18 MCG (18 MCG),IH
     Dates: start: 20050801
  2. SPIRIVA [Suspect]
  3. SYNTHROID [Concomitant]
  4. ALBUTEROL SULFATE AUTOHALER [Concomitant]
  5. ACTONEL [Concomitant]
  6. PRESERVISION GELS [Concomitant]

REACTIONS (1)
  - AGEUSIA [None]
